FAERS Safety Report 18486000 (Version 1)
Quarter: 2020Q4

REPORT INFORMATION
  Report Type: Report from Study
  Country: None (occurrence: US)
  Receive Date: 20201110
  Receipt Date: 20201110
  Transmission Date: 20210114
  Serious: Yes (Other)
  Sender: FDA-Public Use
  Company Number: US-ABBVIE-20K-163-3634781-00

PATIENT
  Sex: Male

DRUGS (4)
  1. TAMIFLU [Concomitant]
     Active Substance: OSELTAMIVIR PHOSPHATE
     Indication: PRODUCT USED FOR UNKNOWN INDICATION
  2. VITAMIN D3 [Concomitant]
     Active Substance: CHOLECALCIFEROL
     Indication: PRODUCT USED FOR UNKNOWN INDICATION
  3. OMEPRAZOLE. [Concomitant]
     Active Substance: OMEPRAZOLE
     Indication: PRODUCT USED FOR UNKNOWN INDICATION
  4. VENCLEXTA [Suspect]
     Active Substance: VENETOCLAX
     Indication: CHRONIC LYMPHOCYTIC LEUKAEMIA
     Route: 048
     Dates: start: 20191201

REACTIONS (11)
  - B-cell lymphoma [Unknown]
  - Herpes zoster [Unknown]
  - Lymphadenopathy [Unknown]
  - Neuropathy peripheral [Unknown]
  - Leukocytosis [Unknown]
  - Nodule [Unknown]
  - Thrombocytopenia [Unknown]
  - Sinusitis [Unknown]
  - Contrast media allergy [Unknown]
  - Back pain [Unknown]
  - Tension headache [Unknown]
